FAERS Safety Report 5755309-6 (Version None)
Quarter: 2008Q2

REPORT INFORMATION
  Report Type: 
  Country: None (occurrence: None)
  Receive Date: 20080529
  Receipt Date: 20080529
  Transmission Date: 20081010
  Serious: Yes (Hospitalization)
  Sender: FDA-Public Use
  Company Number: None

PATIENT
  Sex: Female
  Weight: 88.4514 kg

DRUGS (1)
  1. CLINDAMYCIN HCL [Suspect]
     Indication: CELLULITIS STAPHYLOCOCCAL
     Dosage: ONE TABLET 4 TIMES DAILY PO
     Route: 048
     Dates: start: 20080402, end: 20080407

REACTIONS (4)
  - CLOSTRIDIUM DIFFICILE COLITIS [None]
  - COLONIC OBSTRUCTION [None]
  - HAEMATOCHEZIA [None]
  - PUS IN STOOL [None]
